FAERS Safety Report 10977731 (Version 1)
Quarter: 2015Q2

REPORT INFORMATION
  Report Type: Spontaneous
  Country: US (occurrence: None)
  Receive Date: 20150401
  Receipt Date: 20150401
  Transmission Date: 20150821
  Serious: Yes (Disabling, Other)
  Sender: FDA-Public Use
  Company Number: None

PATIENT
  Age: 61 Year
  Sex: Female
  Weight: 66.68 kg

DRUGS (3)
  1. CHLORTHALIDONE. [Suspect]
     Active Substance: CHLORTHALIDONE
     Indication: HYPERTENSION
     Dosage: TAKEN BY MOUTH
     Dates: start: 20141001, end: 20150221
  2. MULTIVITAMIN [Concomitant]
     Active Substance: VITAMINS
  3. CALCIUM [Concomitant]
     Active Substance: CALCIUM

REACTIONS (11)
  - Blood cholesterol increased [None]
  - Heart rate irregular [None]
  - Skin exfoliation [None]
  - Blood glucose increased [None]
  - Constipation [None]
  - Dry skin [None]
  - Dizziness [None]
  - Headache [None]
  - Amnesia [None]
  - Photophobia [None]
  - Vision blurred [None]

NARRATIVE: CASE EVENT DATE: 20150324
